FAERS Safety Report 5789280-8 (Version None)
Quarter: 2008Q2

REPORT INFORMATION
  Report Type: 
  Country: None (occurrence: None)
  Receive Date: 20080623
  Receipt Date: 20080619
  Transmission Date: 20081010
  Serious: Yes (Congenital Anomaly)
  Sender: FDA-Public Use
  Company Number: 2008SP010365

PATIENT
  Sex: Male
  Weight: 2.55 kg

DRUGS (9)
  1. VIRAFERONPEG [Suspect]
     Indication: HEPATITIS C
     Dosage: TRPL
     Route: 064
     Dates: end: 20070723
  2. COPEGUS [Suspect]
     Indication: HEPATITIS C
     Dosage: TRPL
     Route: 064
  3. DEPAKENE [Suspect]
     Indication: EPILEPSY
     Dosage: TRPL
     Route: 064
     Dates: start: 19970101, end: 20070723
  4. PAROXETINE HCL [Suspect]
     Indication: DRUG USE FOR UNKNOWN INDICATION
     Dosage: TRPL
     Route: 064
     Dates: end: 20070723
  5. CYSTINE B6 (CON.) [Concomitant]
  6. LAMICTAL [Suspect]
     Indication: EPILEPSY
     Dosage: TRPL
     Route: 064
  7. LEVOTHYROX (CON.) [Concomitant]
  8. DOLIPRANE (CON.) [Concomitant]
  9. CYSTINE B6 (CON.) [Concomitant]

REACTIONS (11)
  - CONGENITAL ANOMALY [None]
  - CONGENITAL CENTRAL NERVOUS SYSTEM ANOMALY [None]
  - CRANIOSYNOSTOSIS [None]
  - DRUG EXPOSURE DURING PREGNANCY [None]
  - DYSMORPHISM [None]
  - FONTANELLE DEPRESSED [None]
  - HYPOTELORISM OF ORBIT [None]
  - MATERNAL DRUGS AFFECTING FOETUS [None]
  - NUCLEAR MAGNETIC RESONANCE IMAGING BRAIN ABNORMAL [None]
  - PREMATURE CLOSURE OF CRANIAL SUTURES [None]
  - SKULL MALFORMATION [None]
